FAERS Safety Report 8782363 (Version 1)
Quarter: 2012Q4

REPORT INFORMATION
  Report Type: 
  Country: CA (occurrence: CA)
  Receive Date: 20120913
  Receipt Date: 20120913
  Transmission Date: 20130627
  Serious: Yes (Other)
  Sender: FDA-Public Use
  Company Number: CA-009507513-1209CAN005460

PATIENT

DRUGS (1)
  1. JANUMET [Suspect]
     Indication: TYPE 2 DIABETES MELLITUS

REACTIONS (3)
  - Pancreatic carcinoma [Unknown]
  - Nausea [Unknown]
  - Abdominal discomfort [Unknown]
